FAERS Safety Report 9279454 (Version 2)
Quarter: 2013Q2

REPORT INFORMATION
  Report Type: Spontaneous
  Country: US (occurrence: US)
  Receive Date: 20130508
  Receipt Date: 20130624
  Transmission Date: 20140414
  Serious: Yes (Hospitalization)
  Sender: FDA-Public Use
  Company Number: US-B.I. PHARMACEUTICALS,INC./RIDGEFIELD-2013-BI-11772BP

PATIENT
  Sex: Male
  Weight: 128 kg

DRUGS (21)
  1. SPIRIVA [Suspect]
     Indication: CHRONIC OBSTRUCTIVE PULMONARY DISEASE
     Dosage: 18 MCG
     Route: 055
     Dates: start: 2008
  2. IPRATROPIUM BROMIDE NEBULIZER [Concomitant]
     Indication: CHRONIC OBSTRUCTIVE PULMONARY DISEASE
     Dosage: 1 MG
     Route: 055
  3. ZEBETA [Concomitant]
     Indication: CARDIAC DISORDER
     Dosage: 5 MG
     Route: 048
  4. PANCREATIN [Concomitant]
     Indication: PANCREATECTOMY
     Dosage: 500 MG
     Route: 048
  5. LISINOPRIL [Concomitant]
     Indication: HYPERTENSION
     Dosage: 10 MG
     Route: 048
  6. PERFROMIST NEBULIZER [Concomitant]
     Indication: CHRONIC OBSTRUCTIVE PULMONARY DISEASE
     Dosage: 4 ML
     Route: 055
  7. ALBUTEROL NEBULIZER [Concomitant]
     Indication: CHRONIC OBSTRUCTIVE PULMONARY DISEASE
     Dosage: (INHALATION SOLUTION) STRENGTH: 0.083.
     Route: 055
  8. MUCINEX EX [Concomitant]
     Indication: CHRONIC OBSTRUCTIVE PULMONARY DISEASE
     Dosage: 1200 MG
     Route: 048
  9. PAXIL [Concomitant]
     Indication: PANIC ATTACK
     Dosage: 40 MG
     Route: 048
  10. ASPIRIN [Concomitant]
     Indication: CARDIAC DISORDER
     Dosage: 81 MG
     Route: 048
  11. BUDESONIDE NEBULIZER [Concomitant]
     Indication: CHRONIC OBSTRUCTIVE PULMONARY DISEASE
     Dosage: 1 MG
     Route: 055
  12. NORCO [Concomitant]
     Indication: PAIN
     Dosage: STRENGTH: 5 MG / 325 MG
     Route: 048
  13. PRILOSEC [Concomitant]
     Indication: DYSPEPSIA
     Dosage: 20 MG
     Route: 048
  14. GEMFIBROZIL [Concomitant]
     Indication: BLOOD CHOLESTEROL INCREASED
     Dosage: 1200 MG
     Route: 048
  15. ARIXTRA [Concomitant]
     Indication: THROMBOSIS
     Dosage: 10 MG
  16. RISPERDAL [Concomitant]
     Indication: NERVOUS SYSTEM DISORDER
     Dosage: 2 MG
     Route: 048
  17. FENOFIBRATE [Concomitant]
     Indication: CARDIAC DISORDER
     Dosage: 200 MG
     Route: 048
  18. IMDUR [Concomitant]
     Indication: ANGINA PECTORIS
     Dosage: 30 MG
     Route: 048
  19. THEOPHYLLINE [Concomitant]
     Indication: CHRONIC OBSTRUCTIVE PULMONARY DISEASE
     Dosage: 600 MG
     Route: 048
  20. BUPROPION SR [Concomitant]
     Indication: DEPRESSION
     Dosage: 300 MG
     Route: 048
  21. NITROGLYCERIN SL [Concomitant]
     Indication: CHEST PAIN
     Route: 048

REACTIONS (2)
  - Thrombosis [Not Recovered/Not Resolved]
  - Coagulopathy [Not Recovered/Not Resolved]
